FAERS Safety Report 11767626 (Version 2)
Quarter: 2015Q4

REPORT INFORMATION
  Report Type: Spontaneous
  Country: US (occurrence: US)
  Receive Date: 20151123
  Receipt Date: 20151125
  Transmission Date: 20160304
  Serious: Yes (Hospitalization, Other)
  Sender: FDA-Public Use
  Company Number: US-GLAXOSMITHKLINE-US2015165745

PATIENT
  Age: 41 Year
  Sex: Female

DRUGS (1)
  1. BENLYSTA [Suspect]
     Active Substance: BELIMUMAB
     Indication: SYSTEMIC LUPUS ERYTHEMATOSUS
     Dosage: UNK, Z
     Route: 042
     Dates: start: 2014

REACTIONS (12)
  - Emergency care examination [Unknown]
  - Bladder disorder [Unknown]
  - Pain [Recovering/Resolving]
  - Bladder dysfunction [Unknown]
  - Dyspnoea [Unknown]
  - Hypopnoea [Unknown]
  - Urinary retention [Unknown]
  - Fibromyalgia [Unknown]
  - Spinal nerve stimulator implantation [Recovering/Resolving]
  - Surgery [Unknown]
  - Dyspnoea [Not Recovered/Not Resolved]
  - Bladder catheterisation [Unknown]

NARRATIVE: CASE EVENT DATE: 20150625
